FAERS Safety Report 9896145 (Version 1)
Quarter: 2014Q1

REPORT INFORMATION
  Report Type: Spontaneous
  Country: US (occurrence: US)
  Receive Date: 20140213
  Receipt Date: 20140213
  Transmission Date: 20141002
  Serious: No
  Sender: FDA-Public Use
  Company Number: US-BRISTOL-MYERS SQUIBB COMPANY-19767573

PATIENT
  Age: 57 Year
  Sex: Male
  Weight: 99.77 kg

DRUGS (6)
  1. ABATACEPT SUBQ INJECTION 125MG/ML [Suspect]
     Dosage: 1DF=125 MG/ML
     Route: 058
  2. NEXIUM [Concomitant]
     Dosage: CAP
  3. FOLIC ACID [Concomitant]
     Dosage: TAB
  4. HYDROXYCHLOROQUINE [Concomitant]
     Dosage: TAB
  5. SINGULAIR [Concomitant]
     Dosage: TAB
  6. TESTOSTERONE [Concomitant]
     Dosage: INJ 100MG/ML

REACTIONS (4)
  - Alopecia [Unknown]
  - Fatigue [Unknown]
  - Joint stiffness [Unknown]
  - Pain [Unknown]
